FAERS Safety Report 16489093 (Version 2)
Quarter: 2019Q2

REPORT INFORMATION
  Report Type: Spontaneous
  Country: US (occurrence: US)
  Receive Date: 20190628
  Receipt Date: 20190628
  Transmission Date: 20190711
  Serious: No
  Sender: FDA-Public Use
  Company Number: US-SHIRE-US201920633

PATIENT
  Sex: Male

DRUGS (1)
  1. HYQVIA [Suspect]
     Active Substance: HUMAN IMMUNOGLOBULIN G\HYALURONIDASE RECOMBINANT HUMAN
     Indication: PRODUCT USED FOR UNKNOWN INDICATION
     Dosage: 30 GRAM, EVERY 4 WK
     Route: 065

REACTIONS (4)
  - Infusion site pain [Recovered/Resolved]
  - Infusion site swelling [Recovered/Resolved]
  - Infusion site erythema [Recovered/Resolved]
  - Infusion site extravasation [Recovered/Resolved]
